FAERS Safety Report 8695905 (Version 2)
Quarter: 2013Q4

REPORT INFORMATION
  Report Type: Spontaneous
  Country: US (occurrence: US)
  Receive Date: 20120801
  Receipt Date: 20131107
  Transmission Date: 20140711
  Serious: Yes (Other)
  Sender: FDA-Public Use
  Company Number: US-009507513-1207USA009992

PATIENT
  Sex: Female

DRUGS (1)
  1. MK-0733 [Suspect]
     Route: 048

REACTIONS (2)
  - Abasia [Unknown]
  - Malaise [Unknown]
